FAERS Safety Report 8816372 (Version 1)
Quarter: 2012Q4

REPORT INFORMATION
  Report Type: Spontaneous
  Country: US (occurrence: None)
  Receive Date: 20120928
  Receipt Date: 20120928
  Transmission Date: 20130627
  Serious: Yes (Other)
  Sender: FDA-Public Use
  Company Number: None

PATIENT
  Age: 30 Year
  Sex: Female
  Weight: 88.45 kg

DRUGS (1)
  1. CREST PRO-HEALTH SENSITIVE SHIELD SMOOTH MINT [Suspect]
     Dates: start: 20120912

REACTIONS (4)
  - Feeling hot [None]
  - Oral mucosal exfoliation [None]
  - Gingival pain [None]
  - Oral disorder [None]
